FAERS Safety Report 4376653-3 (Version None)
Quarter: 2004Q2

REPORT INFORMATION
  Report Type: 
  Country: None (occurrence: None)
  Receive Date: 20040608
  Receipt Date: 20040524
  Transmission Date: 20050107
  Serious: No
  Sender: FDA-Public Use
  Company Number: CEL-2004-00920-ROC

PATIENT
  Age: 79 Year
  Sex: Female

DRUGS (3)
  1. ZAROXOLYN [Suspect]
     Indication: OEDEMA
  2. NAMENDA [Suspect]
     Indication: DEMENTIA
     Dosage: 10 MG, QD, ROUTE PO
     Route: 048
     Dates: start: 20040121
  3. LASIX [Suspect]
     Indication: OEDEMA
     Dates: end: 20040209

REACTIONS (1)
  - HYPONATRAEMIA [None]
